FAERS Safety Report 17528160 (Version 1)
Quarter: 2020Q1

REPORT INFORMATION
  Report Type: Spontaneous
  Country: IT (occurrence: IT)
  Receive Date: 20200311
  Receipt Date: 20200311
  Transmission Date: 20200409
  Serious: Yes (Hospitalization)
  Sender: FDA-Public Use
  Company Number: NVSC2020IT065973

PATIENT
  Age: 29 Year
  Sex: Female
  Weight: 47.2 kg

DRUGS (8)
  1. CARBOPLATIN. [Suspect]
     Active Substance: CARBOPLATIN
     Indication: BREAST CANCER
  2. TRASTUZUMAB. [Suspect]
     Active Substance: TRASTUZUMAB
     Indication: BREAST CANCER
  3. CARBOPLATIN. [Suspect]
     Active Substance: CARBOPLATIN
     Indication: HER-2 POSITIVE BREAST CANCER
     Dosage: 186 MG {LAST DOSE OF CARBOPLATIN BEFORE THE SAE/ SERIOUS ADVERSE EVENT WAS ON 12/SEP/2019}
     Route: 042
     Dates: start: 20190506, end: 20190912
  4. PACLITAXEL. [Suspect]
     Active Substance: PACLITAXEL
     Indication: HER-2 POSITIVE BREAST CANCER
  5. PERTUZUMAB. [Suspect]
     Active Substance: PERTUZUMAB
     Indication: HER-2 POSITIVE BREAST CANCER
     Dosage: 420 MG {RECEIVED TOTAL 6 CYCLES.LAST DOSE OF PERTUZUMAB BEFORE THE SAE/ SERIOUS ADVERSE EVENT WAS ON
     Route: 042
     Dates: start: 20190506
  6. PACLITAXEL. [Suspect]
     Active Substance: PACLITAXEL
     Indication: BREAST CANCER
     Dosage: 121.8 MBQ {LAST DOSE OF PACLITAXEL BEFORE THE SAE/ SERIOUS ADVERSE EVENT WAS ON 12/SEP/2019}
     Route: 042
  7. TRASTUZUMAB. [Suspect]
     Active Substance: TRASTUZUMAB
     Indication: HER-2 POSITIVE BREAST CANCER
     Dosage: 306 MG {NO OF CYCLES RECEIVED 6 LAST DOSE OF TRASTUZUMAB BEFORE THE SAE/ SERIOUS ADVERSE EVENT WAS O
     Route: 041
     Dates: start: 20190506
  8. PERTUZUMAB. [Suspect]
     Active Substance: PERTUZUMAB
     Indication: BREAST CANCER

REACTIONS (1)
  - Post procedural haemorrhage [Recovered/Resolved]

NARRATIVE: CASE EVENT DATE: 20191106
